FAERS Safety Report 5189232-5 (Version None)
Quarter: 2006Q4

REPORT INFORMATION
  Report Type: 
  Country: None (occurrence: None)
  Receive Date: 20061221
  Receipt Date: 20060719
  Transmission Date: 20070319
  Serious: Yes (Hospitalization)
  Sender: FDA-Public Use
  Company Number: US-AMGEN-US186798

PATIENT
  Sex: Female

DRUGS (3)
  1. NEULASTA [Suspect]
     Indication: CHEMOTHERAPY
     Route: 065
     Dates: start: 20060701
  2. ADRIAMYCIN PFS [Concomitant]
     Route: 065
  3. CYTOXAN [Concomitant]
     Route: 065

REACTIONS (4)
  - ASTHMA [None]
  - HYPERSENSITIVITY [None]
  - SWOLLEN TONGUE [None]
  - URTICARIA [None]
